FAERS Safety Report 10674014 (Version 4)
Quarter: 2016Q2

REPORT INFORMATION
  Report Type: Report from Study
  Country: DE (occurrence: DE)
  Receive Date: 20141224
  Receipt Date: 20160607
  Transmission Date: 20160815
  Serious: Yes (Hospitalization)
  Sender: FDA-Public Use
  Company Number: DE-INCYTE CORPORATION-2014IN003986

PATIENT
  Age: 65 Year
  Sex: Female
  Weight: 50 kg

DRUGS (15)
  1. INCB018424 [Suspect]
     Active Substance: RUXOLITINIB
     Indication: MYELOFIBROSIS
     Dosage: 10 MG, (QD) TWICE
     Route: 048
     Dates: start: 20140528
  2. INCB018424 [Suspect]
     Active Substance: RUXOLITINIB
     Dosage: 10 MG, (QD) TWICE
     Route: 048
     Dates: start: 20140814, end: 20141029
  3. INCB018424 [Suspect]
     Active Substance: RUXOLITINIB
     Dosage: 30 MG, (QD) TWICE
     Route: 048
     Dates: start: 20141030, end: 20141111
  4. INCB018424 [Suspect]
     Active Substance: RUXOLITINIB
     Dosage: 15 MG, QD
     Route: 048
     Dates: start: 20141112, end: 20141208
  5. INCB018424 [Suspect]
     Active Substance: RUXOLITINIB
     Dosage: 30 MG, (QD) TWICE
     Route: 048
     Dates: start: 20141209, end: 20150724
  6. FORMOTEROL [Concomitant]
     Active Substance: FORMOTEROL
     Indication: BRONCHITIS
     Dosage: 12.5 UG, BID
     Route: 065
     Dates: start: 20140513
  7. INCB018424 [Suspect]
     Active Substance: RUXOLITINIB
     Dosage: 40 MG, (QD) TWICE
     Route: 048
     Dates: start: 20160204
  8. INCB018424 [Suspect]
     Active Substance: RUXOLITINIB
     Dosage: 30 MG, (QD) TWICE
     Route: 048
     Dates: start: 20140613, end: 20140813
  9. INCB018424 [Suspect]
     Active Substance: RUXOLITINIB
     Dosage: 30 MG, (QD) TWICE
     Route: 048
     Dates: start: 20151029, end: 20160203
  10. LITALIR [Concomitant]
     Active Substance: HYDROXYUREA
     Indication: MYELOFIBROSIS
     Dosage: 1000 MG, QD
     Route: 065
     Dates: start: 20141204, end: 20141218
  11. CLONT [Concomitant]
     Indication: PRODUCT USED FOR UNKNOWN INDICATION
     Dosage: 6 G, QD
     Route: 065
     Dates: start: 20150217, end: 20150306
  12. DOXYCYCLINE. [Concomitant]
     Active Substance: DOXYCYCLINE
     Indication: PHARYNGITIS
     Dosage: UNK
     Route: 065
     Dates: start: 20140613
  13. LITALIR [Concomitant]
     Active Substance: HYDROXYUREA
     Dosage: 1500 MG, QD
     Route: 065
     Dates: start: 20141219
  14. INCB018424 [Suspect]
     Active Substance: RUXOLITINIB
     Dosage: 40 MG, (QD) TWICE
     Route: 048
     Dates: start: 20150725
  15. IBUPROFEN. [Concomitant]
     Active Substance: IBUPROFEN
     Indication: INTERVERTEBRAL DISC PROTRUSION
     Dosage: 600 MG, QD
     Route: 065
     Dates: start: 20130902

REACTIONS (3)
  - White blood cell count increased [Unknown]
  - Blast cell crisis [Unknown]
  - Leukaemoid reaction [Recovered/Resolved]

NARRATIVE: CASE EVENT DATE: 20141208
